FAERS Safety Report 5006906-7 (Version None)
Quarter: 2006Q1

REPORT INFORMATION
  Report Type: 
  Country: None (occurrence: None)
  Receive Date: 20060320
  Receipt Date: 20051012
  Transmission Date: 20060701
  Serious: Yes (Hospitalization)
  Sender: FDA-Public Use
  Company Number: 2005-10-0844

PATIENT
  Sex: Male

DRUGS (2)
  1. PEG-INTRON [Suspect]
  2. RIBAVIRIN [Suspect]
     Dosage: ORAL
     Route: 048

REACTIONS (1)
  - PLATELET COUNT DECREASED [None]
